FAERS Safety Report 24210494 (Version 1)
Quarter: 2024Q3

REPORT INFORMATION
  Report Type: Spontaneous
  Country: FR (occurrence: FR)
  Receive Date: 20240814
  Receipt Date: 20240814
  Transmission Date: 20241016
  Serious: Yes (Hospitalization)
  Sender: ROCHE
  Company Number: None

PATIENT
  Age: 73 Year
  Sex: Female
  Weight: 70 kg

DRUGS (3)
  1. HEMLIBRA [Suspect]
     Active Substance: EMICIZUMAB-KXWH
     Indication: Product used for unknown indication
     Dosage: 3 MG/KG 1 FOIS PAR SEMAINE PENDANT 4 SEMAINES
     Route: 058
     Dates: start: 20240614, end: 20240628
  2. FEIBA [Concomitant]
     Active Substance: ANTI-INHIBITOR COAGULANT COMPLEX
     Indication: Acquired haemophilia
     Dosage: 50 UI/KG
     Route: 042
     Dates: start: 20240604, end: 20240607
  3. FEIBA [Concomitant]
     Active Substance: ANTI-INHIBITOR COAGULANT COMPLEX
     Dosage: 80 UI/KG
     Route: 042
     Dates: start: 20240607, end: 20240612

REACTIONS (2)
  - Cerebrovascular accident [Recovering/Resolving]
  - Thrombotic microangiopathy [Not Recovered/Not Resolved]

NARRATIVE: CASE EVENT DATE: 20240628
